FAERS Safety Report 4893753-X (Version None)
Quarter: 2006Q1

REPORT INFORMATION
  Report Type: 
  Country: None (occurrence: None)
  Receive Date: 20060127
  Receipt Date: 20060117
  Transmission Date: 20060701
  Serious: Yes (Hospitalization)
  Sender: FDA-Public Use
  Company Number: US-KINGPHARMUSA00001-K200600036

PATIENT
  Age: 84 Year
  Sex: Female

DRUGS (7)
  1. ALTACE [Suspect]
     Indication: MYOCARDIAL INFARCTION
     Dosage: 1.25 MG, QD
     Route: 048
     Dates: end: 20050923
  2. LASILIX [Suspect]
     Indication: MYOCARDIAL INFARCTION
     Dosage: 40 MG, QD
     Route: 048
  3. ISOPTIN [Suspect]
     Indication: MYOCARDIAL INFARCTION
     Dosage: 240 MG, QD
     Route: 048
     Dates: end: 20050923
  4. ISOPTIN [Suspect]
     Dosage: 120 MG,
     Route: 048
  5. SYMBICORT TURBUHALER ^DRACO^ [Concomitant]
     Indication: CHRONIC OBSTRUCTIVE PULMONARY DISEASE
     Dosage: 2 U, UNK
  6. ACETAMINOPHEN [Concomitant]
     Indication: ARTHROPATHY
     Dosage: 1500 MG, UNK
     Route: 048
  7. INIPOMP [Concomitant]
     Dosage: 40 MG, UNK
     Route: 048

REACTIONS (7)
  - DRUG INTERACTION [None]
  - FALL [None]
  - HAEMATOMA [None]
  - INTRACRANIAL INJURY [None]
  - LOSS OF CONSCIOUSNESS [None]
  - MALAISE [None]
  - ORTHOSTATIC HYPOTENSION [None]
